FAERS Safety Report 6772126-9 (Version None)
Quarter: 2010Q2

REPORT INFORMATION
  Report Type: 
  Country: None (occurrence: None)
  Receive Date: 20100616
  Receipt Date: 20100607
  Transmission Date: 20101027
  Serious: Yes (Hospitalization)
  Sender: FDA-Public Use
  Company Number: B0659244A

PATIENT
  Age: 61 Year
  Sex: Female

DRUGS (5)
  1. AMOXICILLIN AND CLAVULANATE POTASSIUM [Suspect]
     Indication: DRUG USE FOR UNKNOWN INDICATION
     Route: 042
  2. PHENTANYL [Concomitant]
     Dosage: 2UGK PER DAY
  3. PROPOFOL [Concomitant]
     Dosage: 1.8MGK PER DAY
  4. CISATRACURIUM [Concomitant]
     Dosage: 1.5MGK PER DAY
  5. SEVOFLURANE [Concomitant]

REACTIONS (9)
  - ACUTE CORONARY SYNDROME [None]
  - ANAPHYLACTIC SHOCK [None]
  - BRADYCARDIA [None]
  - ELECTROCARDIOGRAM ST SEGMENT DEPRESSION [None]
  - ELECTROCARDIOGRAM ST SEGMENT ELEVATION [None]
  - HAEMODYNAMIC INSTABILITY [None]
  - HYPERTENSION [None]
  - SHOCK [None]
  - SINUS TACHYCARDIA [None]
